FAERS Safety Report 10070502 (Version 1)
Quarter: 2014Q2

REPORT INFORMATION
  Report Type: Spontaneous
  Country: CH (occurrence: CH)
  Receive Date: 20140410
  Receipt Date: 20140410
  Transmission Date: 20141212
  Serious: Yes (Hospitalization, Other)
  Sender: FDA-Public Use
  Company Number: CH-ASTRAZENECA-2014SE23289

PATIENT
  Age: 60 Year
  Sex: Male

DRUGS (16)
  1. BRILIQUE [Suspect]
     Indication: ACUTE MYOCARDIAL INFARCTION
     Route: 048
  2. ASPIRIN [Suspect]
     Route: 048
  3. FLOXAPEN [Suspect]
     Indication: STAPHYLOCOCCAL SEPSIS
     Route: 041
     Dates: start: 20140108, end: 20140116
  4. FRAXIPARINE [Suspect]
     Indication: VENOUS THROMBOSIS LIMB
     Route: 041
     Dates: start: 20140106
  5. AUGMENTIN [Suspect]
     Indication: STAPHYLOCOCCAL SEPSIS
     Route: 041
     Dates: start: 20140106, end: 20140108
  6. ORFIRIL [Suspect]
     Route: 048
  7. PANTOZOL [Concomitant]
     Route: 048
  8. BELOC [Concomitant]
     Indication: ACUTE MYOCARDIAL INFARCTION
     Route: 048
  9. EZETROL [Concomitant]
     Indication: HYPERCHOLESTEROLAEMIA
     Route: 048
  10. MYFORTIC [Concomitant]
     Indication: KIDNEY TRANSPLANT REJECTION
     Dosage: 360 MG 2 PER 12 HOURS
     Route: 048
  11. SANDIMMUN NEORAL [Concomitant]
     Indication: KIDNEY TRANSPLANT REJECTION
     Route: 048
  12. SANDIMMUN NEORAL [Concomitant]
     Indication: KIDNEY TRANSPLANT REJECTION
     Route: 048
  13. SANDIMMUN NEORAL [Concomitant]
     Indication: KIDNEY TRANSPLANT REJECTION
     Route: 048
  14. VI-DE 3 [Concomitant]
     Dosage: 7 GTT DROP(S), 4500 IU 1 PER 1 DAY(S)
     Route: 048
  15. LISINOPRIL [Concomitant]
     Route: 048
  16. SPIRICORT [Concomitant]
     Route: 048

REACTIONS (4)
  - Staphylococcal sepsis [Unknown]
  - Thrombophlebitis septic [Unknown]
  - Epilepsy [Unknown]
  - Purpura [Recovering/Resolving]
